FAERS Safety Report 8308863-4 (Version None)
Quarter: 2012Q2

REPORT INFORMATION
  Report Type: 
  Country: None (occurrence: None)
  Receive Date: 20120424
  Receipt Date: 20120420
  Transmission Date: 20120825
  Serious: Yes (Life-Threatening, Hospitalization, Other)
  Sender: FDA-Public Use
  Company Number: JP-PFIZER INC-2012036121

PATIENT
  Sex: Female
  Weight: 3.514 kg

DRUGS (6)
  1. MEILAX [Suspect]
     Indication: DEPRESSION
     Dosage: 1 MG, 1X/DAY
     Route: 064
  2. PROPOFOL [Suspect]
     Indication: GENERAL ANAESTHESIA
     Dosage: 150 MG, UNK
     Route: 064
     Dates: start: 20120204, end: 20120204
  3. SEVOFLURANE [Suspect]
     Indication: GENERAL ANAESTHESIA
     Dosage: UNK
     Route: 064
     Dates: start: 20120204, end: 20120204
  4. SUCCINYLCHOLINE CHLORIDE INJ [Suspect]
     Indication: GENERAL ANAESTHESIA
     Dosage: 80 MG, UNK
     Route: 064
     Dates: start: 20120204, end: 20120204
  5. FENTANYL [Suspect]
     Indication: GENERAL ANAESTHESIA
     Dosage: 2 MG, UNK
     Route: 064
     Dates: start: 20120204, end: 20120204
  6. ZOLOFT [Suspect]
     Indication: DEPRESSION
     Dosage: 25 MG, 1X/DAY
     Route: 064

REACTIONS (7)
  - MATERNAL EXPOSURE TIMING UNSPECIFIED [None]
  - NEONATAL ASPHYXIA [None]
  - FEEDING DISORDER NEONATAL [None]
  - INAPPROPRIATE ANTIDIURETIC HORMONE SECRETION [None]
  - SOMNOLENCE [None]
  - NEONATAL HYPONATRAEMIA [None]
  - BLOOD LACTATE DEHYDROGENASE INCREASED [None]
